FAERS Safety Report 7576430-6 (Version None)
Quarter: 2011Q2

REPORT INFORMATION
  Report Type: 
  Country: None (occurrence: None)
  Receive Date: 20110628
  Receipt Date: 20110614
  Transmission Date: 20111010
  Serious: Yes (Death, Other)
  Sender: FDA-Public Use
  Company Number: US-BAYER-2011-036266

PATIENT
  Age: 15 Year
  Sex: Female

DRUGS (6)
  1. YASMIN [Suspect]
     Indication: DYSMENORRHOEA
     Dosage: UNK
     Route: 048
  2. PREDNISONE [Concomitant]
     Indication: RASH
  3. YAZ [Suspect]
     Indication: ACNE
     Dosage: UNK UNK, QD
     Route: 048
  4. YASMIN [Suspect]
     Indication: ACNE
  5. OMNICEF [Concomitant]
     Dosage: UNK
     Dates: start: 20090501
  6. DROSPIRENONE AND ETHINYL ESTRADIOL [Suspect]
     Indication: ACNE
     Dosage: UNK
     Route: 048
     Dates: start: 20080801, end: 20090613

REACTIONS (1)
  - PULMONARY EMBOLISM [None]
